FAERS Safety Report 4266028-X (Version None)
Quarter: 2004Q1

REPORT INFORMATION
  Report Type: 
  Country: None (occurrence: None)
  Receive Date: 20040106
  Receipt Date: 20031219
  Transmission Date: 20041129
  Serious: Yes (Death)
  Sender: FDA-Public Use
  Company Number: HCDA20030009

PATIENT
  Age: 40 Year
  Sex: Female

DRUGS (4)
  1. HYDROCODONE BITARTRATE AND ACETAMINOPHEN [Suspect]
     Dosage: PO
     Route: 048
     Dates: start: 20020101, end: 20020101
  2. ACETAMINOPHEN [Suspect]
     Dosage: 100 TABS PO
     Route: 048
     Dates: start: 20020101, end: 20020101
  3. FLUOXETINE [Suspect]
     Dosage: PO
     Route: 048
     Dates: start: 20020101, end: 20020101
  4. ASPIRIN [Suspect]
     Dosage: PO
     Route: 048
     Dates: start: 20020101, end: 20020101

REACTIONS (16)
  - ALANINE AMINOTRANSFERASE INCREASED [None]
  - ASPARTATE AMINOTRANSFERASE INCREASED [None]
  - BLOOD BILIRUBIN INCREASED [None]
  - BLOOD POTASSIUM DECREASED [None]
  - CARDIAC FAILURE [None]
  - COMPLETED SUICIDE [None]
  - CORONARY ARTERY ATHEROSCLEROSIS [None]
  - HAEMATEMESIS [None]
  - HEART RATE INCREASED [None]
  - HYPOTENSION [None]
  - INTERNATIONAL NORMALISED RATIO INCREASED [None]
  - LUNG CREPITATION [None]
  - MULTIPLE DRUG OVERDOSE [None]
  - OXYGEN SATURATION DECREASED [None]
  - PCO2 DECREASED [None]
  - PROTHROMBIN TIME PROLONGED [None]
